FAERS Safety Report 5070363-5 (Version None)
Quarter: 2006Q3

REPORT INFORMATION
  Report Type: 
  Country: None (occurrence: None)
  Receive Date: 20060731
  Receipt Date: 20060718
  Transmission Date: 20061208
  Serious: Yes (Hospitalization)
  Sender: FDA-Public Use
  Company Number: 2006087016

PATIENT
  Age: 79 Year
  Sex: Female

DRUGS (11)
  1. LYRICA [Suspect]
     Indication: DIABETIC NEUROPATHY
     Dosage: 150 MG (75 MG, 2 IN 1 D), ORAL
     Route: 048
     Dates: start: 20060509, end: 20060517
  2. ACETAMINOPHEN [Suspect]
     Indication: CONTUSION
     Dosage: 1500 MG (500 MG, 3 IN 1 D), ORAL
     Route: 048
     Dates: start: 20060515, end: 20060517
  3. DICLOFENAC SODIUM [Suspect]
     Indication: CONTUSION
     Dosage: (1 IN 1 D)
     Dates: start: 20020516, end: 20060517
  4. GLUCOPHAGE [Concomitant]
  5. CARVIPRESS (CARVEDILOL) [Concomitant]
  6. NITROGLYCERIN [Concomitant]
  7. HUMULIN (INSULIN HUMAN, INSULIN ISOPHANE, HUMAN BIOSYNTHETIC) [Concomitant]
  8. LANTUS [Concomitant]
  9. LACIREX (LACIDIPINE) [Concomitant]
  10. COAPROVEL (HYDROCHLOROTHIAZIDE, IRBESARTAN) [Concomitant]
  11. LASIX [Concomitant]

REACTIONS (7)
  - CHEST PAIN [None]
  - CONFUSIONAL STATE [None]
  - CONTUSION [None]
  - FATIGUE [None]
  - OEDEMA [None]
  - PULMONARY CONGESTION [None]
  - WATER INTOXICATION [None]
